FAERS Safety Report 6617102-1 (Version None)
Quarter: 2010Q1

REPORT INFORMATION
  Report Type: 
  Country: None (occurrence: None)
  Receive Date: 20100307
  Receipt Date: 20100304
  Transmission Date: 20100710
  Serious: Yes (Hospitalization)
  Sender: FDA-Public Use
  Company Number: MX-BRISTOL-MYERS SQUIBB COMPANY-14108799

PATIENT
  Age: 38 Year
  Sex: Female
  Weight: 54 kg

DRUGS (4)
  1. ABATACEPT [Suspect]
     Indication: RHEUMATOID ARTHRITIS
     Route: 042
     Dates: start: 20051227
  2. METHOTREXATE [Concomitant]
     Route: 048
     Dates: start: 20051227
  3. FOLIC ACID [Concomitant]
     Route: 048
     Dates: start: 20051227
  4. DEFLAZACORT [Concomitant]
     Route: 048
     Dates: start: 20051105

REACTIONS (1)
  - APPENDICITIS [None]
